FAERS Safety Report 12075407 (Version 3)
Quarter: 2017Q1

REPORT INFORMATION
  Report Type: Report from Study
  Country: US (occurrence: US)
  Receive Date: 20160213
  Receipt Date: 20170320
  Transmission Date: 20170428
  Serious: No
  Sender: FDA-Public Use
  Company Number: US-AMGEN-USASL2016015169

PATIENT
  Age: 62 Year
  Sex: Female

DRUGS (1)
  1. ENBREL [Suspect]
     Active Substance: ETANERCEPT
     Indication: RHEUMATOID ARTHRITIS
     Dosage: 50 MG, QWK
     Route: 065
     Dates: start: 201503

REACTIONS (6)
  - Aphonia [Unknown]
  - Nasal congestion [Unknown]
  - Dysphonia [Unknown]
  - Ear pain [Unknown]
  - Hypoacusis [Not Recovered/Not Resolved]
  - Paranasal sinus discomfort [Unknown]

NARRATIVE: CASE EVENT DATE: 2016
